FAERS Safety Report 10491444 (Version 1)
Quarter: 2014Q4

REPORT INFORMATION
  Report Type: Spontaneous
  Country: US (occurrence: US)
  Receive Date: 20141002
  Receipt Date: 20141002
  Transmission Date: 20150528
  Serious: No
  Sender: FDA-Public Use
  Company Number: US-GLAXOSMITHKLINE-A1053063A

PATIENT
  Age: 79 Year
  Sex: Female
  Weight: 65.9 kg

DRUGS (13)
  1. ADVAIR HFA [Suspect]
     Active Substance: FLUTICASONE PROPIONATE\SALMETEROL XINAFOATE
     Indication: ASTHMA
     Dosage: 1PUFF TWICE PER DAY
     Route: 055
  2. AMOXICILLIN. [Concomitant]
     Active Substance: AMOXICILLIN
  3. VAGINAL CREAM [Concomitant]
  4. ESTRACE [Concomitant]
     Active Substance: ESTRADIOL
  5. VITAMIN C [Concomitant]
     Active Substance: ASCORBIC ACID
  6. EVISTA [Concomitant]
     Active Substance: RALOXIFENE HYDROCHLORIDE
  7. AMLODIPINE BESYLATE. [Concomitant]
     Active Substance: AMLODIPINE BESYLATE
  8. LEVOTHYROXINE SODIUM. [Concomitant]
     Active Substance: LEVOTHYROXINE SODIUM
  9. ALPRAZOLAM. [Concomitant]
     Active Substance: ALPRAZOLAM
  10. CALCIUM + D [Concomitant]
     Active Substance: CALCIUM\VITAMIN D
  11. LEVETIRACETAM. [Concomitant]
     Active Substance: LEVETIRACETAM
  12. LISINOPRIL. [Concomitant]
     Active Substance: LISINOPRIL
  13. LYRICA [Concomitant]
     Active Substance: PREGABALIN

REACTIONS (4)
  - Oropharyngeal pain [Not Recovered/Not Resolved]
  - Cough [Not Recovered/Not Resolved]
  - Drug administration error [Unknown]
  - Throat irritation [Not Recovered/Not Resolved]

NARRATIVE: CASE EVENT DATE: 201311
